FAERS Safety Report 15235294 (Version 1)
Quarter: 2018Q3

REPORT INFORMATION
  Report Type: Spontaneous
  Country: US (occurrence: US)
  Receive Date: 20180709
  Receipt Date: 20180709
  Transmission Date: 20181010
  Serious: Yes (Other)
  Sender: FDA-Public Use
  Company Number: None

PATIENT
  Age: 66 Year
  Sex: Female
  Weight: 89.1 kg

DRUGS (7)
  1. NYSTATIN. [Suspect]
     Active Substance: NYSTATIN
     Indication: CANDIDA INFECTION
     Dosage: QUANTITY:1 TEASPOON(S);?
     Route: 048
     Dates: start: 20180703, end: 20180704
  2. ISOSORBIDE. [Concomitant]
     Active Substance: ISOSORBIDE
  3. DILTIAZEM. [Concomitant]
     Active Substance: DILTIAZEM
  4. ALBUTEROL. [Concomitant]
     Active Substance: ALBUTEROL
  5. INHALER [Concomitant]
     Active Substance: UNSPECIFIED INGREDIENT
  6. C?PAP [Concomitant]
  7. INJECTION B?12 NEBULIZER [Concomitant]

REACTIONS (1)
  - Gastrointestinal pain [None]

NARRATIVE: CASE EVENT DATE: 20180704
